FAERS Safety Report 18867357 (Version 1)
Quarter: 2021Q1

REPORT INFORMATION
  Report Type: Report from Study
  Country: US (occurrence: US)
  Receive Date: 20210209
  Receipt Date: 20210209
  Transmission Date: 20210420
  Serious: Yes (Death, Other)
  Sender: FDA-Public Use
  Company Number: US-MYLANLABS-2021M1007284

PATIENT
  Age: 73 Year
  Sex: Male

DRUGS (3)
  1. CYTARABINE INJECTION [Suspect]
     Active Substance: CYTARABINE
     Indication: PRODUCT USED FOR UNKNOWN INDICATION
     Dosage: 360 MILLIGRAM, QD
     Dates: start: 20201009, end: 20201015
  2. DAUNORUBICIN [Suspect]
     Active Substance: DAUNORUBICIN
     Indication: PRODUCT USED FOR UNKNOWN INDICATION
     Dosage: 110 MILLIGRAM, QD
     Dates: start: 20201009, end: 20201011
  3. GILTERITINIB [Suspect]
     Active Substance: GILTERITINIB
     Indication: PRODUCT USED FOR UNKNOWN INDICATION
     Dosage: 120 MILLIGRAM, QD
     Dates: start: 20201016, end: 20201029

REACTIONS (4)
  - Respiratory distress [Fatal]
  - Acute pulmonary oedema [Not Recovered/Not Resolved]
  - Sepsis [Unknown]
  - Acute kidney injury [Unknown]

NARRATIVE: CASE EVENT DATE: 2020
